FAERS Safety Report 14443228 (Version 1)
Quarter: 2018Q1

REPORT INFORMATION
  Report Type: Spontaneous
  Country: US (occurrence: US)
  Receive Date: 20180125
  Receipt Date: 20180125
  Transmission Date: 20180509
  Serious: No
  Sender: FDA-Public Use
  Company Number: US-ABBVIE-17K-163-2034103-00

PATIENT

DRUGS (1)
  1. HUMIRA [Suspect]
     Active Substance: ADALIMUMAB
     Indication: PRODUCT USED FOR UNKNOWN INDICATION
     Route: 058
     Dates: start: 201706

REACTIONS (8)
  - Drug hypersensitivity [Unknown]
  - Panic attack [Unknown]
  - Anxiety [Unknown]
  - Rash [Unknown]
  - Condition aggravated [Unknown]
  - Injection site pain [Unknown]
  - Crying [Unknown]
  - Tremor [Unknown]

NARRATIVE: CASE EVENT DATE: 2017
